FAERS Safety Report 8891827 (Version 2)
Quarter: 2013Q1

REPORT INFORMATION
  Report Type: Spontaneous
  Country: US (occurrence: None)
  Receive Date: 20121031
  Receipt Date: 20121107
  Transmission Date: 20140127
  Serious: Yes (Other)
  Sender: FDA-Public Use
  Company Number: AUR-APL-2012-04592

PATIENT
  Age: 56 Year
  Sex: Female

DRUGS (4)
  1. VENLAFAXINE [Suspect]
     Indication: DEPRESSION
     Route: 048
     Dates: end: 20121018
  2. ESCITALOPRAM [Suspect]
     Indication: DEPRESSION
  3. PRISTIQ [Suspect]
     Indication: DEPRESSION
     Route: 048
  4. ADVAIR [Suspect]
     Indication: ASTHMA
     Route: 055

REACTIONS (4)
  - Depression [None]
  - Suicidal ideation [None]
  - No therapeutic response [None]
  - Blood glucose increased [None]
